FAERS Safety Report 16355934 (Version 1)
Quarter: 2019Q2

REPORT INFORMATION
  Report Type: Spontaneous
  Country: US (occurrence: US)
  Receive Date: 20190526
  Receipt Date: 20190526
  Transmission Date: 20190711
  Serious: No
  Sender: FDA-Public Use
  Company Number: US-JNJFOC-20190505769

PATIENT
  Age: 19 Year
  Sex: Female
  Weight: 64 kg

DRUGS (2)
  1. DARZALEX [Suspect]
     Active Substance: DARATUMUMAB
     Indication: IMMUNE SYSTEM DISORDER
     Route: 065
     Dates: start: 201901
  2. DARZALEX [Suspect]
     Active Substance: DARATUMUMAB
     Indication: SCLERODERMA
     Route: 065
     Dates: start: 201901

REACTIONS (3)
  - Product use in unapproved indication [Unknown]
  - Antibody test positive [Unknown]
  - Off label use [Unknown]

NARRATIVE: CASE EVENT DATE: 2019
